FAERS Safety Report 21081704 (Version 2)
Quarter: 2022Q3

REPORT INFORMATION
  Report Type: Spontaneous
  Country: US (occurrence: US)
  Receive Date: 20220714
  Receipt Date: 20220719
  Transmission Date: 20221027
  Serious: No
  Sender: FDA-Public Use
  Company Number: US-PFIZER INC-202200950099

PATIENT
  Age: 39 Year
  Sex: Male

DRUGS (1)
  1. XELJANZ [Suspect]
     Active Substance: TOFACITINIB CITRATE
     Dosage: 5 MG, 1X/DAY (TAKE WITH OR WITHOUT FOOD. STORE AT ROOM TEMPERATURE)
     Route: 048

REACTIONS (1)
  - COVID-19 [Unknown]
